FAERS Safety Report 24841659 (Version 1)
Quarter: 2025Q1

REPORT INFORMATION
  Report Type: Spontaneous
  Country: US (occurrence: None)
  Receive Date: 20250114
  Receipt Date: 20250114
  Transmission Date: 20250409
  Serious: No
  Sender: FDA-CTU
  Company Number: None

PATIENT
  Age: 6 Month
  Sex: Female
  Weight: 6.3 kg

DRUGS (2)
  1. BEYFORTUS [Suspect]
     Active Substance: NIRSEVIMAB-ALIP
     Dates: start: 20250109, end: 20250109
  2. BEYFORTUS [Concomitant]
     Active Substance: NIRSEVIMAB-ALIP
     Dates: start: 20250109, end: 20250109

REACTIONS (2)
  - Extra dose administered [None]
  - Wrong schedule [None]

NARRATIVE: CASE EVENT DATE: 20250109
